FAERS Safety Report 5030876-9 (Version None)
Quarter: 2006Q2

REPORT INFORMATION
  Report Type: 
  Country: None (occurrence: None)
  Receive Date: 20060503
  Receipt Date: 20060126
  Transmission Date: 20061013
  Serious: No
  Sender: FDA-Public Use
  Company Number: FACT0600039

PATIENT
  Age: 73 Year
  Sex: Female
  Weight: 70.3 kg

DRUGS (13)
  1. FACTIVE [Suspect]
     Indication: RESPIRATORY TRACT INFECTION BACTERIAL
     Dosage: 320 MG, QD, ORAL
     Route: 048
     Dates: start: 20060124, end: 20060101
  2. ZYRTEC-D (CETIRIZINE HDYROCHLORIDE, PSEUDOEPHEDRINE HYDROCHLORIDE) [Suspect]
     Dosage: ORAL
     Route: 048
     Dates: start: 20060124
  3. ADVAIR DISKUS 100/50 [Concomitant]
  4. PRILOSEC [Concomitant]
  5. LIPITOR  /NET/ (ATORVASTATIN CALCIUM) [Concomitant]
  6. LEVOBID [Concomitant]
  7. MACRODANTIN [Concomitant]
  8. XANAX [Concomitant]
  9. PROZAC [Concomitant]
  10. CALCIUM (CALCIUM) [Concomitant]
  11. CRANBERRY PILLS [Concomitant]
  12. GLUCOSAMINE W/CHONDROITIN (CHONDROITIN SULFATE, GLUCOSAMINE) [Concomitant]
  13. ZICAM (ZINC GLUCONATE) [Concomitant]

REACTIONS (1)
  - EYE PAIN [None]
